FAERS Safety Report 5677319-X (Version None)
Quarter: 2008Q1

REPORT INFORMATION
  Report Type: 
  Country: None (occurrence: None)
  Receive Date: 20080324
  Receipt Date: 20080313
  Transmission Date: 20080703
  Serious: Yes (Hospitalization, Other)
  Sender: FDA-Public Use
  Company Number: US-MERCK-0511USA03093

PATIENT
  Age: 58 Year
  Sex: Female
  Weight: 61 kg

DRUGS (42)
  1. FOSAMAX [Suspect]
     Indication: OSTEOPENIA
     Route: 048
     Dates: start: 20000301, end: 20010301
  2. FOSAMAX [Suspect]
     Route: 048
     Dates: start: 20010301, end: 20041101
  3. FOSAMAX [Suspect]
     Indication: OSTEOPOROSIS
     Route: 048
     Dates: start: 20000301, end: 20010301
  4. FOSAMAX [Suspect]
     Route: 048
     Dates: start: 20010301, end: 20041101
  5. ELAVIL [Concomitant]
     Route: 065
     Dates: start: 20011101, end: 20060824
  6. DURAGESIC-100 [Concomitant]
     Route: 065
     Dates: start: 20030327
  7. NEURONTIN [Concomitant]
     Route: 065
     Dates: start: 20011009, end: 20040827
  8. NAPROXEN SODIUM [Concomitant]
     Route: 065
     Dates: start: 20030626, end: 20040827
  9. NITROFURANTOIN [Concomitant]
     Indication: ACNE
     Route: 065
     Dates: start: 20000224, end: 20040802
  10. SALAGEN [Concomitant]
     Route: 065
     Dates: start: 20031023, end: 20040317
  11. SF 5000 PLUS [Concomitant]
     Indication: DENTAL DISORDER PROPHYLAXIS
     Route: 065
     Dates: start: 20040108
  12. CLOBETASOL PROPIONATE [Concomitant]
     Route: 065
     Dates: start: 20031204
  13. DESOXIMETASONE [Concomitant]
     Route: 065
     Dates: start: 20031203
  14. TRIAMCINOLONE [Concomitant]
     Route: 065
     Dates: start: 20031129
  15. PREMARIN [Concomitant]
     Route: 065
     Dates: start: 20040427
  16. HYDROCODONE BITARTRATE [Concomitant]
     Route: 065
     Dates: start: 20010509, end: 20031031
  17. IBUPROFEN [Concomitant]
     Route: 065
     Dates: start: 20010115, end: 20030605
  18. PREMPRO [Concomitant]
     Route: 065
     Dates: start: 20000210, end: 20030530
  19. TRANSDERM SCOP [Concomitant]
     Route: 065
     Dates: start: 20020718, end: 20020802
  20. MACROBID [Concomitant]
     Route: 065
     Dates: start: 20020715
  21. METRONIDAZOLE [Concomitant]
     Route: 065
     Dates: start: 20020503
  22. CELEBREX [Concomitant]
     Route: 065
     Dates: start: 20010627, end: 20020520
  23. ACETAMINOPHEN [Concomitant]
     Route: 065
     Dates: start: 20011205, end: 20020322
  24. MINOCYCLINE HYDROCHLORIDE [Concomitant]
     Route: 065
     Dates: start: 20011205, end: 20020322
  25. ALLEGRA [Concomitant]
     Route: 065
     Dates: start: 20000309, end: 20011230
  26. BENZONATATE [Concomitant]
     Route: 065
     Dates: start: 20011221
  27. KEFLEX [Concomitant]
     Route: 065
     Dates: start: 20011112
  28. DARVON [Concomitant]
     Route: 065
     Dates: start: 20010313, end: 20020131
  29. CLARITIN [Concomitant]
     Route: 065
     Dates: start: 20010110
  30. TEMAZEPAM [Concomitant]
     Route: 065
     Dates: start: 20001107, end: 20010110
  31. TEQUIN [Concomitant]
     Route: 065
     Dates: start: 20010110
  32. CLONAZEPAM [Concomitant]
     Route: 065
     Dates: start: 20001227
  33. PREDNISONE [Concomitant]
     Route: 065
     Dates: start: 20010711
  34. DURATUSS [Concomitant]
     Route: 065
     Dates: start: 20001226
  35. PAXIL [Concomitant]
     Route: 065
     Dates: start: 20001226
  36. ZOVIRAX [Concomitant]
     Route: 065
     Dates: start: 20000114, end: 20001219
  37. FLUOCINONIDE [Concomitant]
     Route: 065
     Dates: start: 20000118, end: 20001219
  38. DIFFERIN [Concomitant]
     Route: 065
     Dates: start: 20000224, end: 20001219
  39. NIZORAL [Concomitant]
     Route: 065
     Dates: start: 20000224, end: 20001105
  40. GUAIFENEX [Concomitant]
     Route: 065
     Dates: start: 20001107
  41. RETIN-A [Concomitant]
     Route: 065
     Dates: start: 20000225
  42. VICODIN [Concomitant]
     Route: 065
     Dates: start: 20010511, end: 20010101

REACTIONS (34)
  - ABSCESS [None]
  - ANXIETY [None]
  - BACK PAIN [None]
  - CONDITION AGGRAVATED [None]
  - DENTAL CARIES [None]
  - DEPRESSION [None]
  - DYSPHAGIA [None]
  - EXOSTOSIS [None]
  - FATIGUE [None]
  - FISTULA [None]
  - GASTROOESOPHAGEAL REFLUX DISEASE [None]
  - GINGIVAL BLEEDING [None]
  - GINGIVAL INFECTION [None]
  - IMPAIRED HEALING [None]
  - LUNG NEOPLASM [None]
  - NECK PAIN [None]
  - OESOPHAGEAL DISORDER [None]
  - ORAL HERPES [None]
  - ORAL INFECTION [None]
  - OSTEOMYELITIS [None]
  - OSTEONECROSIS [None]
  - PARAESTHESIA [None]
  - PERIODONTAL DISEASE [None]
  - PERIODONTITIS [None]
  - PROTEINURIA [None]
  - RAYNAUD'S PHENOMENON [None]
  - REFUSAL OF TREATMENT BY PATIENT [None]
  - RENAL DISORDER [None]
  - RENAL FAILURE [None]
  - RENAL FAILURE CHRONIC [None]
  - SCLERODERMA [None]
  - SYSTEMIC SCLEROSIS [None]
  - TACHYCARDIA [None]
  - TOOTH EXTRACTION [None]
